FAERS Safety Report 14959907 (Version 2)
Quarter: 2018Q2

REPORT INFORMATION
  Report Type: Report from Study
  Country: US (occurrence: US)
  Receive Date: 20180531
  Receipt Date: 20180622
  Transmission Date: 20180711
  Serious: Yes (Hospitalization)
  Sender: FDA-Public Use
  Company Number: US-ACTELION-A-US2016-135407

PATIENT
  Age: 72 Year
  Sex: Female

DRUGS (10)
  1. CITALOPRAM [Concomitant]
     Active Substance: CITALOPRAM HYDROBROMIDE
  2. BOTOX [Concomitant]
     Active Substance: ONABOTULINUMTOXINA
  3. UPTRAVI [Suspect]
     Active Substance: SELEXIPAG
     Indication: PULMONARY ARTERIAL HYPERTENSION
     Dosage: 1600 MCG, BID
     Route: 048
     Dates: start: 20160302
  4. UPTRAVI [Suspect]
     Active Substance: SELEXIPAG
     Dosage: 1400 MCG, BID
     Route: 048
     Dates: start: 20160301
  5. OPSUMIT [Suspect]
     Active Substance: MACITENTAN
     Indication: PULMONARY ARTERIAL HYPERTENSION
     Dosage: 10 MG, QD
     Route: 048
     Dates: start: 20160526
  6. ADEMPAS [Suspect]
     Active Substance: RIOCIGUAT
     Indication: PRODUCT USED FOR UNKNOWN INDICATION
     Route: 065
  7. ADCIRCA [Concomitant]
     Active Substance: TADALAFIL
  8. OMEPRAZOLE. [Concomitant]
     Active Substance: OMEPRAZOLE
  9. SIMVASTATIN. [Concomitant]
     Active Substance: SIMVASTATIN
  10. ASPIRIN. [Concomitant]
     Active Substance: ASPIRIN

REACTIONS (16)
  - Headache [Unknown]
  - Nausea [Unknown]
  - Fatigue [Unknown]
  - Respiratory tract infection [Recovered/Resolved]
  - Haematochezia [Recovering/Resolving]
  - Haemorrhoidal haemorrhage [Recovered/Resolved]
  - Palpitations [Unknown]
  - Diarrhoea [Recovering/Resolving]
  - Malaise [Unknown]
  - Transfusion [Recovered/Resolved]
  - Dyspnoea [Recovered/Resolved]
  - Therapy non-responder [Unknown]
  - Upper respiratory tract infection [Recovered/Resolved]
  - Cough [Unknown]
  - Nasopharyngitis [Recovering/Resolving]
  - Oxygen consumption increased [Recovering/Resolving]

NARRATIVE: CASE EVENT DATE: 20160605
